FAERS Safety Report 5024439-9 (Version None)
Quarter: 2006Q2

REPORT INFORMATION
  Report Type: 
  Country: None (occurrence: None)
  Receive Date: 20060613
  Receipt Date: 20060529
  Transmission Date: 20061013
  Serious: Yes (Other)
  Sender: FDA-Public Use
  Company Number: PHBS2006IE07904

PATIENT
  Age: 33 Year
  Sex: Female

DRUGS (5)
  1. CLOZAPINE [Suspect]
     Indication: SCHIZOPHRENIA
     Route: 065
  2. OXYGEN [Suspect]
     Route: 065
  3. THIOPENTONE [Suspect]
     Dosage: 350 MG/D
     Route: 042
  4. THIOPENTONE [Suspect]
     Dosage: 50 MG/D
     Route: 042
  5. SUCCINYLCHOLINE CHLORIDE [Suspect]
     Dosage: 100 MG/D
     Route: 042

REACTIONS (5)
  - BLOOD PRESSURE INCREASED [None]
  - CAESAREAN SECTION [None]
  - DRUG EXPOSURE DURING PREGNANCY [None]
  - FOETAL HEART RATE DECELERATION [None]
  - NORMAL NEWBORN [None]
